FAERS Safety Report 10131780 (Version 3)
Quarter: 2014Q2

REPORT INFORMATION
  Report Type: Spontaneous
  Country: US (occurrence: US)
  Receive Date: 20140428
  Receipt Date: 20140520
  Transmission Date: 20141212
  Serious: Yes (Death, Hospitalization)
  Sender: FDA-Public Use
  Company Number: US-BAXTER-2014BAX020221

PATIENT
  Sex: Female

DRUGS (3)
  1. DIANEAL LOW CALCIUM [Suspect]
     Indication: RENAL FAILURE CHRONIC
     Route: 033
     Dates: start: 201312, end: 201404
  2. DIANEAL LOW CALCIUM [Suspect]
     Indication: PERITONEAL DIALYSIS
     Route: 033
     Dates: start: 201312, end: 201404
  3. 0.9% SODIUM CHLORIDE FOR HEMODIALYSIS [Suspect]
     Indication: HAEMODIALYSIS
     Dates: start: 201404, end: 201404

REACTIONS (3)
  - Myocardial infarction [Fatal]
  - Pneumonia [Fatal]
  - Sepsis [Fatal]
